FAERS Safety Report 6740268-X (Version None)
Quarter: 2010Q2

REPORT INFORMATION
  Report Type: 
  Country: None (occurrence: None)
  Receive Date: 20100525
  Receipt Date: 20100519
  Transmission Date: 20101027
  Serious: Yes (Death)
  Sender: FDA-Public Use
  Company Number: RS-MERCK-1005USA02767

PATIENT
  Age: 80 Year
  Sex: Male
  Weight: 90 kg

DRUGS (8)
  1. ZOCOR [Suspect]
     Indication: ANGINA PECTORIS
     Route: 048
  2. ASPIRIN [Concomitant]
     Indication: ANGINA PECTORIS
     Route: 065
  3. CLOPIDOGREL BISULFATE [Concomitant]
     Route: 065
  4. DANAZOL [Suspect]
     Indication: IDIOPATHIC THROMBOCYTOPENIC PURPURA
     Route: 065
  5. INSULIN [Concomitant]
     Route: 065
  6. PANTOPRAZOLE [Concomitant]
     Route: 065
  7. PREDNISONE [Concomitant]
     Route: 065
  8. RAMIPRIL [Concomitant]
     Route: 065

REACTIONS (2)
  - DRUG INTERACTION [None]
  - RHABDOMYOLYSIS [None]
